FAERS Safety Report 6750430-8 (Version None)
Quarter: 2010Q2

REPORT INFORMATION
  Report Type: 
  Country: None (occurrence: None)
  Receive Date: 20100601
  Receipt Date: 20100519
  Transmission Date: 20101027
  Serious: Yes (Other)
  Sender: FDA-Public Use
  Company Number: CA-ELI_LILLY_AND_COMPANY-CA201005007043

PATIENT
  Age: 89 Year
  Sex: Female
  Weight: 43.084 kg

DRUGS (5)
  1. ZYPREXA [Suspect]
     Dosage: 2.5 MG, UNK
     Dates: start: 20050501, end: 20081101
  2. ZYPREXA [Suspect]
     Dosage: 10 MG, UNK
     Dates: start: 20050501, end: 20081101
  3. VITAMIN B-12 [Concomitant]
     Dosage: 5 D/F, MONTHLY (1/M)
  4. REMINYL [Concomitant]
     Dosage: 16 MG, UNK
     Dates: start: 20050101
  5. MEMANTINE HCL [Concomitant]
     Dates: start: 20090501

REACTIONS (9)
  - BALANCE DISORDER [None]
  - CONFUSIONAL STATE [None]
  - COORDINATION ABNORMAL [None]
  - DISTURBANCE IN ATTENTION [None]
  - DRY MOUTH [None]
  - FALL [None]
  - MUSCLE RIGIDITY [None]
  - SPEECH DISORDER [None]
  - WEIGHT DECREASED [None]
